FAERS Safety Report 6305666-7 (Version None)
Quarter: 2009Q3

REPORT INFORMATION
  Report Type: 
  Country: None (occurrence: None)
  Receive Date: 20090807
  Receipt Date: 20090724
  Transmission Date: 20100115
  Serious: No
  Sender: FDA-Public Use
  Company Number: US024420

PATIENT
  Sex: Male

DRUGS (3)
  1. FENTORA [Suspect]
     Indication: PAIN
     Dosage: 9600 MCG (800 MCG, 12 IN 1 D), BU; 3200 MCG (800 MCG, 4 IN 1 D), BU; 1600 MCG, 6-8 TIMES PER DAY, BU
     Route: 002
  2. OXYCONTIN [Concomitant]
  3. MORPHINE [Concomitant]

REACTIONS (2)
  - DRUG PRESCRIBING ERROR [None]
  - DRUG WITHDRAWAL SYNDROME [None]
